FAERS Safety Report 9304867 (Version 1)
Quarter: 2013Q2

REPORT INFORMATION
  Report Type: Spontaneous
  Country: US (occurrence: None)
  Receive Date: 20130521
  Receipt Date: 20130521
  Transmission Date: 20140414
  Serious: Yes (Hospitalization)
  Sender: FDA-Public Use
  Company Number: None

PATIENT
  Age: 95 Year
  Sex: Female
  Weight: 58.97 kg

DRUGS (1)
  1. KEFLEX [Suspect]
     Indication: URINARY TRACT INFECTION
     Dates: start: 20130515, end: 20130518

REACTIONS (3)
  - Agitation [None]
  - Confusional state [None]
  - Hallucination, visual [None]
